FAERS Safety Report 6087678-4 (Version None)
Quarter: 2009Q1

REPORT INFORMATION
  Report Type: 
  Country: None (occurrence: None)
  Receive Date: 20090223
  Receipt Date: 20090210
  Transmission Date: 20090719
  Serious: Yes (Hospitalization)
  Sender: FDA-Public Use
  Company Number: JP-ROCHE-612279

PATIENT
  Sex: Male

DRUGS (5)
  1. TAMIFLU [Suspect]
     Indication: INFLUENZA
     Dosage: DRUG REPORTED: TAMIFLU CAPSULE
     Route: 048
     Dates: start: 20090127, end: 20090127
  2. CODEINE PHOSPHATE [Concomitant]
     Dosage: FORM REPORTED: ORAL FORMULATION (NOT OTHERWISE SPECIFIED).
     Route: 048
     Dates: start: 20090127, end: 20090127
  3. AMBRON [Concomitant]
     Dosage: FORM REPORTED: FINE GRANULE
     Route: 048
     Dates: start: 20090127, end: 20090127
  4. CHLORPHENIRAMINE MALEATE [Concomitant]
     Dosage: DRUG:NEOMALLERMIN (D-CHLORPHENIRAMINE MALEATE)
     Route: 048
     Dates: start: 20090127, end: 20090127
  5. COCARL [Concomitant]
     Dosage: FORM REPORTED AS ORAL FORMULATION (NOT OTHERWISE SPECIFIED).
     Route: 048
     Dates: start: 20090127, end: 20090127

REACTIONS (1)
  - CONVULSION [None]
